FAERS Safety Report 8045930-7 (Version None)
Quarter: 2012Q1

REPORT INFORMATION
  Report Type: 
  Country: None (occurrence: None)
  Receive Date: 20120113
  Receipt Date: 20120103
  Transmission Date: 20120608
  Serious: Yes (Death, Life-Threatening)
  Sender: FDA-Public Use
  Company Number: FR-GLAXOSMITHKLINE-B0772545A

PATIENT
  Sex: Female
  Weight: 53 kg

DRUGS (10)
  1. NOROXIN [Concomitant]
     Indication: URINARY TRACT INFECTION
     Route: 048
     Dates: start: 20111027
  2. PRAVASTATIN SODIUM [Concomitant]
     Dosage: 1UNIT PER DAY
     Route: 065
     Dates: end: 20111028
  3. ARIXTRA [Suspect]
     Indication: THROMBOSIS PROPHYLAXIS
     Dosage: 7.5MG PER DAY
     Route: 058
     Dates: start: 20111014, end: 20111028
  4. CORDARONE [Concomitant]
     Route: 048
  5. ZOCOR [Concomitant]
     Route: 048
  6. KETOPROFEN [Concomitant]
     Indication: PROCEDURAL PAIN
     Dosage: 100MG TWICE PER DAY
     Route: 048
     Dates: start: 20111021, end: 20111028
  7. IRBESARTAN [Concomitant]
     Indication: HYPERTENSION
     Dosage: 75MG PER DAY
     Route: 048
  8. UN-ALFA [Concomitant]
     Dosage: 25MCG PER DAY
     Route: 048
     Dates: end: 20111028
  9. NEXIUM [Concomitant]
     Dosage: 40MG PER DAY
     Route: 048
  10. LEVOTHYROXINE SODIUM [Concomitant]
     Route: 048

REACTIONS (3)
  - SHOCK HAEMORRHAGIC [None]
  - OVERDOSE [None]
  - HAEMATOMA [None]
